FAERS Safety Report 7435588-X (Version None)
Quarter: 2011Q2

REPORT INFORMATION
  Report Type: 
  Country: None (occurrence: None)
  Receive Date: 20110425
  Receipt Date: 20110420
  Transmission Date: 20111010
  Serious: Yes (Hospitalization, Other)
  Sender: FDA-Public Use
  Company Number: BR-ABBOTT-11P-020-0720561-00

PATIENT
  Sex: Female
  Weight: 70 kg

DRUGS (10)
  1. CIPROFLOXACIN HCL [Suspect]
     Indication: PRODUCT USED FOR UNKNOWN INDICATION
  2. LEFLUNOMIDE [Concomitant]
     Indication: RHEUMATOID ARTHRITIS
     Route: 048
  3. PREDNISONE [Concomitant]
     Indication: RHEUMATOID ARTHRITIS
     Route: 048
  4. ENALAPRIL [Concomitant]
     Indication: RENAL DISORDER
     Route: 048
  5. ENALAPRIL [Concomitant]
     Indication: HYPERTENSION
  6. SIMVASTATIN [Concomitant]
     Indication: HYPERTENSION
  7. HUMIRA [Suspect]
     Indication: RHEUMATOID ARTHRITIS
     Route: 058
     Dates: start: 20101101, end: 20110301
  8. FUROSEMIDE [Concomitant]
     Indication: RENAL DISORDER
     Route: 048
  9. SIMVASTATIN [Concomitant]
     Indication: RENAL DISORDER
     Route: 048
  10. FUROSEMIDE [Concomitant]
     Indication: HYPERTENSION

REACTIONS (9)
  - EYE SWELLING [None]
  - APPLICATION SITE HYPERSENSITIVITY [None]
  - HYPERTENSION [None]
  - APPLICATION SITE OEDEMA [None]
  - APPLICATION SITE ERYTHEMA [None]
  - APPLICATION SITE NODULE [None]
  - SWELLING FACE [None]
  - PAIN [None]
  - PHARYNGEAL OEDEMA [None]
